FAERS Safety Report 18034352 (Version 10)
Quarter: 2022Q3

REPORT INFORMATION
  Report Type: Spontaneous
  Country: GB (occurrence: GB)
  Receive Date: 20200716
  Receipt Date: 20220921
  Transmission Date: 20221027
  Serious: Yes (Death, Other)
  Sender: FDA-Public Use
  Company Number: GB-JNJFOC-20200705740

PATIENT
  Age: 73 Year
  Sex: Female

DRUGS (17)
  1. DOXORUBICIN HYDROCHLORIDE [Suspect]
     Active Substance: DOXORUBICIN HYDROCHLORIDE
     Indication: Waldenstrom^s macroglobulinaemia
     Dosage: UNK
     Route: 065
  2. VINCRISTINE SULFATE [Suspect]
     Active Substance: VINCRISTINE SULFATE
     Indication: Waldenstrom^s macroglobulinaemia
     Dosage: UNK
     Route: 065
  3. IMBRUVICA [Suspect]
     Active Substance: IBRUTINIB
     Indication: Waldenstrom^s macroglobulinaemia
     Dosage: PRN
     Route: 048
     Dates: start: 20190802, end: 20190927
  4. IMBRUVICA [Suspect]
     Active Substance: IBRUTINIB
     Dosage: 140 MG
     Route: 048
  5. IMBRUVICA [Suspect]
     Active Substance: IBRUTINIB
     Dosage: PRN
     Route: 048
  6. PREDNISONE [Suspect]
     Active Substance: PREDNISONE
     Indication: Waldenstrom^s macroglobulinaemia
     Dosage: UNK
     Route: 065
  7. PREDNISONE [Suspect]
     Active Substance: PREDNISONE
     Dosage: UNK
     Route: 065
  8. RITUXIMAB [Suspect]
     Active Substance: RITUXIMAB
     Indication: Waldenstrom^s macroglobulinaemia
     Dosage: UNK
     Route: 065
  9. RITUXIMAB [Suspect]
     Active Substance: RITUXIMAB
     Dosage: UNK
     Route: 065
  10. CYCLOPHOSPHAMIDE [Suspect]
     Active Substance: CYCLOPHOSPHAMIDE
     Indication: Waldenstrom^s macroglobulinaemia
     Dosage: UNK
     Route: 065
  11. CYCLOPHOSPHAMIDE [Suspect]
     Active Substance: CYCLOPHOSPHAMIDE
     Dosage: UNK
     Route: 065
  12. ACYCLOVIR [Concomitant]
     Active Substance: ACYCLOVIR
     Indication: Prophylaxis
     Dosage: 200 MG, 3X/DAY
  13. ACYCLOVIR [Concomitant]
     Active Substance: ACYCLOVIR
     Dosage: 600 MG
  14. ACYCLOVIR [Concomitant]
     Active Substance: ACYCLOVIR
     Route: 065
  15. ACYCLOVIR [Concomitant]
     Active Substance: ACYCLOVIR
     Route: 065
  16. ACYCLOVIR [Concomitant]
     Active Substance: ACYCLOVIR
     Route: 065
  17. CO TRIMOXAZOLE [SULFAMETHOXAZOLE;TRIMETHOPRIM] [Concomitant]
     Indication: Prophylaxis
     Dosage: 960 2X/DAY THREE TIMES PER WEEK

REACTIONS (2)
  - Neoplasm progression [Fatal]
  - Diarrhoea [Fatal]

NARRATIVE: CASE EVENT DATE: 20190930
